FAERS Safety Report 9894768 (Version 2)
Quarter: 2014Q1

REPORT INFORMATION
  Report Type: Spontaneous
  Country: US (occurrence: US)
  Receive Date: 20140213
  Receipt Date: 20140217
  Transmission Date: 20141002
  Serious: Yes (Hospitalization, Other)
  Sender: FDA-Public Use
  Company Number: US-GILEAD-2014-0094420

PATIENT
  Sex: Female

DRUGS (2)
  1. LETAIRIS [Suspect]
     Indication: PRODUCT USED FOR UNKNOWN INDICATION
     Dosage: 10 MG, UNK
     Route: 048
     Dates: start: 20090317
  2. FLOLAN [Concomitant]

REACTIONS (11)
  - Lymphadenopathy [Unknown]
  - Medical device complication [Unknown]
  - Pain in extremity [Unknown]
  - Pyrexia [Unknown]
  - Groin pain [Unknown]
  - Device related infection [Unknown]
  - Thrombosis [Unknown]
  - Musculoskeletal pain [Unknown]
  - Abdominal pain upper [Unknown]
  - Vomiting [Unknown]
  - Neck pain [Unknown]
